FAERS Safety Report 13709708 (Version 1)
Quarter: 2020Q3

REPORT INFORMATION
  Report Type: Report from Study
  Country: ZA (occurrence: ZA)
  Receive Date: 20170703
  Receipt Date: 20170703
  Transmission Date: 20201105
  Serious: Yes (Death, Hospitalization)
  Sender: FDA-Public Use
  Company Number: ZA-ACTELION-A-CH2012-69414

PATIENT
  Age: 55 Year
  Sex: Female

DRUGS (18)
  1. SYNAP [Concomitant]
     Dosage: UNK
     Dates: start: 20090716
  2. MACITENTAN [Suspect]
     Active Substance: MACITENTAN
     Indication: PULMONARY ARTERIAL HYPERTENSION
     Dosage: 10 MG, QD
     Route: 048
     Dates: start: 20120203, end: 20121205
  3. AMITRIPTYLINE [Concomitant]
     Active Substance: AMITRIPTYLINE
     Dosage: UNK
     Dates: start: 200112
  4. STERIMAR [Concomitant]
     Active Substance: SEA WATER
     Dosage: UNK
     Dates: start: 20120326
  5. KEXELATE [Concomitant]
     Dosage: UNK
     Dates: start: 20090720
  6. SILDENAFIL. [Concomitant]
     Active Substance: SILDENAFIL
     Dosage: UNK
     Dates: start: 200112
  7. LACTULOSE. [Concomitant]
     Active Substance: LACTULOSE
     Dosage: UNK
     Dates: start: 20090728
  8. MACITENTAN [Suspect]
     Active Substance: MACITENTAN
     Indication: PULMONARY ARTERIAL HYPERTENSION
     Dosage: 10 MG, QD
     Route: 048
     Dates: start: 20120203, end: 20121205
  9. PREGABALIN. [Concomitant]
     Active Substance: PREGABALIN
     Dosage: UNK
     Dates: start: 20090726
  10. AMIODARONE [Concomitant]
     Active Substance: AMIODARONE
     Dosage: UNK
     Dates: start: 20120202
  11. COLCHICINE. [Concomitant]
     Active Substance: COLCHICINE
     Dosage: UNK
     Dates: start: 20120426
  12. CO?MICARDIS [Concomitant]
     Active Substance: HYDROCHLOROTHIAZIDE\TELMISARTAN
     Dosage: UNK
     Dates: start: 200112
  13. RENNIES [Concomitant]
     Dosage: UNK
     Dates: start: 20110715
  14. POTASSIUM CHLORIDE. [Concomitant]
     Active Substance: POTASSIUM CHLORIDE
     Dosage: UNK
     Dates: start: 20090801
  15. OMEPRAZOLE. [Concomitant]
     Active Substance: OMEPRAZOLE
     Dosage: UNK
     Dates: start: 20101206
  16. FUROSEMIDE. [Concomitant]
     Active Substance: FUROSEMIDE
     Dosage: UNK
     Dates: start: 200112
  17. SPIRONOLACTONE. [Concomitant]
     Active Substance: SPIRONOLACTONE
     Dosage: UNK
     Dates: start: 20090517
  18. ALLOPURINOL. [Concomitant]
     Active Substance: ALLOPURINOL
     Dosage: UNK
     Dates: start: 20091003

REACTIONS (12)
  - Right ventricular failure [Fatal]
  - Atrial fibrillation [Fatal]
  - Depression [Unknown]
  - Pulmonary arterial hypertension [Fatal]
  - Renal impairment [Recovered/Resolved]
  - Ascites [Fatal]
  - Condition aggravated [Fatal]
  - Peripheral swelling [Fatal]
  - Jaundice [Fatal]
  - Asthenia [Fatal]
  - Pneumonia [Recovered/Resolved]
  - Dyspnoea [Fatal]

NARRATIVE: CASE EVENT DATE: 20120727
